FAERS Safety Report 4487284-9 (Version None)
Quarter: 2004Q4

REPORT INFORMATION
  Report Type: 
  Country: None (occurrence: None)
  Receive Date: 20041022
  Receipt Date: 20041006
  Transmission Date: 20050328
  Serious: Yes (Death)
  Sender: FDA-Public Use
  Company Number: 2004-BP-09354RO

PATIENT
  Age: 82 Year
  Sex: Female
  Weight: 47 kg

DRUGS (1)
  1. DIGOXIN [Suspect]
     Dosage: 5 MG (NR), PO
     Route: 048

REACTIONS (1)
  - OVERDOSE [None]
